FAERS Safety Report 4269335-X (Version None)
Quarter: 2004Q1

REPORT INFORMATION
  Report Type: 
  Country: None (occurrence: None)
  Receive Date: 20040108
  Receipt Date: 20031225
  Transmission Date: 20041129
  Serious: Yes (Hospitalization)
  Sender: FDA-Public Use
  Company Number: DSK-2002-05406

PATIENT
  Age: 55 Year
  Sex: Male

DRUGS (2)
  1. DV-7314 (CLOPIDOGREL SULFATE) [Suspect]
     Indication: CEREBRAL INFARCTION
     Dosage: 75 MG PER ORAL
     Route: 048
     Dates: start: 20020621, end: 20020628
  2. PENTOIL (EMORFAZONE) [Concomitant]

REACTIONS (8)
  - ANOREXIA [None]
  - BLOOD PRESSURE INCREASED [None]
  - GAMMA-GLUTAMYLTRANSFERASE INCREASED [None]
  - GASTRODUODENITIS [None]
  - GASTROENTERITIS [None]
  - HEADACHE [None]
  - NAUSEA [None]
  - VOMITING [None]
